FAERS Safety Report 10525441 (Version 18)
Quarter: 2018Q4

REPORT INFORMATION
  Report Type: Report from Study
  Country: BR (occurrence: BR)
  Receive Date: 20141017
  Receipt Date: 20181221
  Transmission Date: 20190204
  Serious: Yes (Other)
  Sender: FDA-Public Use
  Company Number: PHHY2014BR132561

PATIENT
  Age: 74 Year
  Sex: Female
  Weight: 75 kg

DRUGS (20)
  1. CABERGOLINA [Suspect]
     Active Substance: CABERGOLINE
     Indication: ACROMEGALY
     Dosage: 1 DF, QW
     Route: 065
  2. ATENOLOL. [Concomitant]
     Active Substance: ATENOLOL
     Dosage: 100 MG, QD
     Route: 065
  3. AMLODIPINA//AMLODIPINE [Concomitant]
     Indication: HYPERTENSION
     Dosage: 1 DF, Q12H
     Route: 065
  4. SANDOSTATIN LAR DEPOT [Suspect]
     Active Substance: OCTREOTIDE ACETATE
     Indication: ACROMEGALY
     Dosage: 30 MG, EVERY 28 DAYS
     Route: 030
     Dates: start: 2010
  5. GALVUS [Suspect]
     Active Substance: VILDAGLIPTIN
     Indication: DIABETES MELLITUS
     Dosage: 2 DF, QD
     Route: 065
     Dates: start: 201304
  6. METFORMIN [Suspect]
     Active Substance: METFORMIN HYDROCHLORIDE
     Indication: PRODUCT USED FOR UNKNOWN INDICATION
     Dosage: 3 DF, QD
     Route: 065
  7. GLIMEPIRIDA [Suspect]
     Active Substance: GLIMEPIRIDE
     Indication: DIABETES MELLITUS
     Dosage: 6 MG, QD
     Route: 065
     Dates: start: 2013
  8. ALPRAZOLAM. [Concomitant]
     Active Substance: ALPRAZOLAM
     Indication: INSOMNIA
     Dosage: 1 DF, AT BEDTIME
     Route: 065
  9. ALPRAZOLAM. [Concomitant]
     Active Substance: ALPRAZOLAM
     Indication: STRESS
  10. GALVUS [Suspect]
     Active Substance: VILDAGLIPTIN
     Dosage: 3 DF, QD
     Route: 065
  11. AVASTIN [Concomitant]
     Active Substance: BEVACIZUMAB
     Indication: VISUAL IMPAIRMENT
     Dosage: 1 DF, UNK
     Route: 065
     Dates: start: 20140216, end: 20140216
  12. ATENOLOL. [Concomitant]
     Active Substance: ATENOLOL
     Dosage: UNK, BID (EVERY 12 HOURS)
     Route: 065
  13. MODURETIC 5-50 [Concomitant]
     Active Substance: AMILORIDE HYDROCHLORIDE\HYDROCHLOROTHIAZIDE
     Indication: HYPERTENSION
     Dosage: 1 DF, QD
     Route: 065
  14. ENALAPRIL MALEATE. [Concomitant]
     Active Substance: ENALAPRIL MALEATE
     Dosage: UNK, QD (ONCE DAILY IN MORNING)
     Route: 065
  15. ATENOLOL. [Concomitant]
     Active Substance: ATENOLOL
     Indication: HYPERTENSION
     Dosage: 50 MG, QD
     Route: 065
  16. CABERGOLINA [Suspect]
     Active Substance: CABERGOLINE
     Dosage: 2 DF, QW
     Route: 065
  17. CABERGOLINA [Suspect]
     Active Substance: CABERGOLINE
     Dosage: 6 DF, QW
     Route: 065
  18. ENALAPRIL MALEATE. [Concomitant]
     Active Substance: ENALAPRIL MALEATE
     Indication: PRODUCT USED FOR UNKNOWN INDICATION
     Dosage: UNK UNK, Q12H (EVERY 12 HOURS)
     Route: 065
  19. MODURETIC 5-50 [Concomitant]
     Active Substance: AMILORIDE HYDROCHLORIDE\HYDROCHLOROTHIAZIDE
     Indication: DIURETIC THERAPY
  20. PURAN [Concomitant]
     Active Substance: LEVOTHYROXINE SODIUM
     Indication: HORMONE REPLACEMENT THERAPY
     Dosage: 1 DF, FASTING PER DAY
     Route: 065

REACTIONS (36)
  - Venous occlusion [Unknown]
  - Gait disturbance [Unknown]
  - Dysuria [Unknown]
  - Pain in extremity [Unknown]
  - Hypokinesia [Unknown]
  - Cough [Recovering/Resolving]
  - Decreased appetite [Unknown]
  - Pain [Not Recovered/Not Resolved]
  - Fall [Unknown]
  - Blood growth hormone increased [Recovered/Resolved]
  - Nasopharyngitis [Recovering/Resolving]
  - Diabetes mellitus [Recovering/Resolving]
  - Mass [Unknown]
  - Blood pressure decreased [Unknown]
  - Nodule [Unknown]
  - Feeling hot [Unknown]
  - Influenza [Recovering/Resolving]
  - Weight increased [Unknown]
  - Arthralgia [Recovering/Resolving]
  - Thyroid disorder [Unknown]
  - Malaise [Unknown]
  - Blood pressure inadequately controlled [Unknown]
  - Limb discomfort [Not Recovered/Not Resolved]
  - Vision blurred [Unknown]
  - Injection site pain [Unknown]
  - Dysphonia [Recovering/Resolving]
  - Weight decreased [Unknown]
  - Speech disorder [Recovering/Resolving]
  - Fall [Recovered/Resolved]
  - Body height decreased [Unknown]
  - Vitamin D decreased [Unknown]
  - Bone disorder [Unknown]
  - Musculoskeletal pain [Not Recovered/Not Resolved]
  - Headache [Unknown]
  - Injection site nodule [Recovered/Resolved]
  - Injection site erythema [Unknown]

NARRATIVE: CASE EVENT DATE: 201303
